FAERS Safety Report 7566014 (Version 25)
Quarter: 2014Q1

REPORT INFORMATION
  Report Type: Spontaneous
  Country: US (occurrence: US)
  Receive Date: 20100830
  Receipt Date: 20140322
  Transmission Date: 20141002
  Serious: Yes (Hospitalization, Other)
  Sender: FDA-Public Use
  Company Number: PHEH2010US03513

PATIENT
  Sex: Female

DRUGS (29)
  1. ZOMETA [Suspect]
     Indication: OSTEOPOROSIS
     Dosage: 4 MG,
     Route: 042
     Dates: start: 2004, end: 2006
  2. ZOMETA [Suspect]
     Dosage: UNK UKN, UNK
     Dates: start: 2004, end: 2007
  3. NORCO [Concomitant]
  4. AVIANE [Concomitant]
  5. CHLORHEXIDINE [Concomitant]
  6. DIFFERIN [Concomitant]
  7. FLEXERIL [Concomitant]
  8. FORTEO [Concomitant]
  9. HYDROCODONE [Concomitant]
  10. PENICILLIN [Concomitant]
  11. SONATA [Concomitant]
  12. ADAPALENE [Concomitant]
  13. CALCITONIN [Concomitant]
  14. ZOFRAN [Concomitant]
  15. DIAZEPAM [Concomitant]
  16. AMOXICILLIN [Concomitant]
  17. PREVACID [Concomitant]
  18. DOMPERIDONE [Concomitant]
  19. REGLAN [Concomitant]
  20. ZANTAC [Concomitant]
  21. DEMEROL [Concomitant]
     Dosage: 50 MG, UNK
  22. VERSED [Concomitant]
     Dosage: 3 MG, UNK
  23. BENADRYL [Concomitant]
     Dosage: 50 MG, UNK
  24. CLOTRIMAZOLE [Concomitant]
     Dosage: 10 MG, 5QD
     Route: 048
  25. DILAUDID [Concomitant]
  26. ZELNORM [Concomitant]
  27. COLACE [Concomitant]
  28. ATIVAN [Concomitant]
  29. THIAMINE [Concomitant]

REACTIONS (120)
  - Osteonecrosis of jaw [Unknown]
  - Injury [Unknown]
  - Disability [Unknown]
  - Pain [Unknown]
  - Anxiety [Unknown]
  - Breath odour [Unknown]
  - Anhedonia [Unknown]
  - Hepatitis [Unknown]
  - Renal failure chronic [Unknown]
  - Malnutrition [Unknown]
  - Gastritis [Unknown]
  - Duodenitis [Unknown]
  - Osteoporosis [Unknown]
  - Impaired gastric emptying [Recovered/Resolved]
  - Kyphosis [Unknown]
  - Ascites [Unknown]
  - Fall [Unknown]
  - Ankle fracture [Unknown]
  - Osteopenia [Unknown]
  - Jaundice [Unknown]
  - Hypertension [Unknown]
  - Hypovolaemia [Unknown]
  - Periodontal disease [Unknown]
  - Swelling face [Unknown]
  - Hyperthyroidism [Unknown]
  - Facial pain [Unknown]
  - Stomatitis [Unknown]
  - Mucosal inflammation [Unknown]
  - Osteomyelitis chronic [Unknown]
  - Tinnitus [Unknown]
  - Cachexia [Unknown]
  - Compression fracture [Unknown]
  - Intervertebral disc degeneration [Unknown]
  - Intervertebral disc protrusion [Unknown]
  - Rib fracture [Unknown]
  - Tooth infection [Unknown]
  - Vision blurred [Unknown]
  - Deafness [Unknown]
  - Hypoaesthesia [Unknown]
  - Bone density decreased [Unknown]
  - Scoliosis [Unknown]
  - Facet joint syndrome [Unknown]
  - Failure to thrive [Unknown]
  - Hyperaldosteronism [Unknown]
  - Palpitations [Unknown]
  - Hypometabolism [Unknown]
  - Sialoadenitis [Unknown]
  - Cranial nerve disorder [Unknown]
  - Pineal gland cyst [Unknown]
  - Endocrine disorder [Unknown]
  - Eustachian tube dysfunction [Unknown]
  - Dental caries [Unknown]
  - Immunodeficiency [Unknown]
  - Fibrocystic breast disease [Unknown]
  - Raynaud^s phenomenon [Unknown]
  - Joint swelling [Unknown]
  - Agitation [Unknown]
  - Dehydration [Unknown]
  - Cerebrovascular accident [Unknown]
  - Tibia fracture [Unknown]
  - Feeling abnormal [Unknown]
  - Bone marrow failure [Unknown]
  - Anorexia nervosa [Unknown]
  - Obsessive-compulsive disorder [Unknown]
  - Intervertebral disc disorder [Unknown]
  - Vertebral wedging [Unknown]
  - Bone marrow oedema [Unknown]
  - Kidney malrotation [Unknown]
  - Osteochondrosis [Unknown]
  - Osteomalacia [Unknown]
  - Right atrial dilatation [Unknown]
  - Hypercorticoidism [Unknown]
  - Amenorrhoea [Unknown]
  - Strabismus [Unknown]
  - Spinal osteoarthritis [Unknown]
  - Fibula fracture [Unknown]
  - Supraventricular extrasystoles [Unknown]
  - Ventricular extrasystoles [Unknown]
  - Hyperparathyroidism [Unknown]
  - Depression [Unknown]
  - Vaginal infection [Unknown]
  - Parotid gland enlargement [Unknown]
  - Purulent discharge [Unknown]
  - Syncope [Unknown]
  - Toothache [Unknown]
  - Spinal fracture [Unknown]
  - Herpes zoster [Unknown]
  - Cyanosis [Unknown]
  - Hypotension [Unknown]
  - Tongue disorder [Unknown]
  - Pigmentation disorder [Unknown]
  - Paraesthesia oral [Unknown]
  - Micrognathia [Unknown]
  - Temporomandibular joint syndrome [Unknown]
  - Stevens-Johnson syndrome [Unknown]
  - Phobia [Unknown]
  - Joint crepitation [Unknown]
  - Panic attack [Unknown]
  - Sinus tachycardia [Unknown]
  - Dyspnoea [Unknown]
  - Coma [Unknown]
  - Gastroenteritis viral [Unknown]
  - Neuropathy peripheral [Unknown]
  - Hypoaesthesia oral [Unknown]
  - Neuralgia [Unknown]
  - Neuritis [Unknown]
  - Radiculitis [Unknown]
  - Excoriation [Unknown]
  - Loss of consciousness [Unknown]
  - Steatorrhoea [Unknown]
  - Mental disorder [Unknown]
  - Sinusitis bacterial [Unknown]
  - Ageusia [Unknown]
  - Glossodynia [Unknown]
  - Erythema [Unknown]
  - Myalgia [Unknown]
  - Paraesthesia [Unknown]
  - Abdominal distension [Unknown]
  - Chronic obstructive pulmonary disease [Unknown]
  - Asthenia [Unknown]
